FAERS Safety Report 13992134 (Version 1)
Quarter: 2017Q3

REPORT INFORMATION
  Report Type: Spontaneous
  Country: US (occurrence: US)
  Receive Date: 20170920
  Receipt Date: 20170920
  Transmission Date: 20171128
  Serious: Yes (Hospitalization)
  Sender: FDA-Public Use
  Company Number: US-JNJFOC-20170721655

PATIENT
  Sex: Male

DRUGS (2)
  1. RISPERDAL CONSTA [Suspect]
     Active Substance: RISPERIDONE
     Indication: SCHIZOPHRENIA
     Dosage: 4 INJECTIONS OVER THE COURSE OF FEW DAYS
     Route: 030
  2. CLOZARIL [Concomitant]
     Active Substance: CLOZAPINE
     Route: 065
     Dates: end: 201707

REACTIONS (5)
  - Extrapyramidal disorder [Not Recovered/Not Resolved]
  - Self-medication [Unknown]
  - Loss of consciousness [Unknown]
  - Overdose [Unknown]
  - Psychotic disorder [Unknown]

NARRATIVE: CASE EVENT DATE: 20170808
